FAERS Safety Report 15776794 (Version 1)
Quarter: 2018Q4

REPORT INFORMATION
  Report Type: Spontaneous
  Country: US (occurrence: US)
  Receive Date: 20181229
  Receipt Date: 20181229
  Transmission Date: 20190205
  Serious: Yes (Hospitalization, Other)
  Sender: FDA-Public Use
  Company Number: None

PATIENT
  Age: 58 Year
  Sex: Female
  Weight: 72.3 kg

DRUGS (3)
  1. ALBUMIN 25 G INFUSION [Concomitant]
     Dates: start: 20181206, end: 20181206
  2. PHYTONADIONE. [Suspect]
     Active Substance: PHYTONADIONE
     Indication: HEPATIC CIRRHOSIS
     Route: 042
     Dates: start: 20181206, end: 20181208
  3. METRONIDAZOLE 500 MG [Concomitant]
     Active Substance: METRONIDAZOLE
     Dates: start: 20181206, end: 20181207

REACTIONS (5)
  - Tachycardia [None]
  - Hypoxia [None]
  - Hypotension [None]
  - Dizziness [None]
  - Rash [None]

NARRATIVE: CASE EVENT DATE: 20181208
